FAERS Safety Report 4339476-7 (Version None)
Quarter: 2004Q2

REPORT INFORMATION
  Report Type: 
  Country: None (occurrence: None)
  Receive Date: 20040415
  Receipt Date: 19980302
  Transmission Date: 20050107
  Serious: Yes (Hospitalization)
  Sender: FDA-Public Use
  Company Number: US-ROCHE-95587

PATIENT
  Age: 14 Year
  Sex: Female
  Weight: 61.2 kg

DRUGS (6)
  1. ACCUTANE [Suspect]
     Route: 048
     Dates: start: 19961215, end: 19970215
  2. ACCUTANE [Suspect]
     Route: 048
     Dates: start: 19970515, end: 19970715
  3. ACCUTANE [Suspect]
     Route: 048
     Dates: start: 19960429, end: 19960829
  4. RETIN-A [Concomitant]
     Indication: ACNE
     Route: 003
  5. MULTIVITAMIN [Concomitant]
     Indication: PROPHYLAXIS
     Route: 048
  6. HERBAL MEDICINE [Concomitant]
     Indication: SLEEP DISORDER
     Dosage: REPORTED AS SLEEPING HERBS.

REACTIONS (45)
  - ACNE [None]
  - ADJUSTMENT DISORDER [None]
  - AGGRESSION [None]
  - AGITATION [None]
  - ALCOHOLISM [None]
  - ANGER [None]
  - ANXIETY [None]
  - ATTENTION DEFICIT/HYPERACTIVITY DISORDER [None]
  - CHEST PAIN [None]
  - CONFUSIONAL STATE [None]
  - CONJUNCTIVITIS [None]
  - CYTOMEGALOVIRUS TEST POSITIVE [None]
  - DECREASED APPETITE [None]
  - DEPERSONALISATION [None]
  - DEPRESSION [None]
  - DEREALISATION [None]
  - DISCOMFORT [None]
  - DIZZINESS [None]
  - DRUG ABUSER [None]
  - DRY SKIN [None]
  - DYSPHORIA [None]
  - EDUCATIONAL PROBLEM [None]
  - EYE INJURY [None]
  - FAMILY STRESS [None]
  - FEELING ABNORMAL [None]
  - HEADACHE [None]
  - INSOMNIA [None]
  - INTENTIONAL SELF-INJURY [None]
  - LACERATION [None]
  - LIP DRY [None]
  - MENTAL DISORDER [None]
  - MOOD ALTERED [None]
  - NAUSEA [None]
  - NECK INJURY [None]
  - NECK PAIN [None]
  - PHARYNGITIS [None]
  - PHARYNGOLARYNGEAL PAIN [None]
  - SCAR [None]
  - SINUS CONGESTION [None]
  - SINUSITIS [None]
  - SUICIDAL IDEATION [None]
  - TENDONITIS [None]
  - THIRST [None]
  - WOUND [None]
  - WOUND DEHISCENCE [None]
